FAERS Safety Report 9790170 (Version 1)
Quarter: 2013Q4

REPORT INFORMATION
  Report Type: Spontaneous
  Country: FR (occurrence: FR)
  Receive Date: 20131231
  Receipt Date: 20131231
  Transmission Date: 20140711
  Serious: Yes (Other)
  Sender: FDA-Public Use
  Company Number: FR-JNJFOC-20131215851

PATIENT
  Age: 30 Year
  Sex: Female

DRUGS (5)
  1. TRIAFEMI [Suspect]
     Indication: CONTRACEPTION
     Route: 048
     Dates: start: 201203, end: 20120607
  2. TRIAFEMI [Suspect]
     Indication: CONTRACEPTION
     Route: 048
     Dates: start: 2012
  3. POLARAMIN [Suspect]
     Indication: ASTHMA
     Route: 048
     Dates: start: 201201, end: 20120607
  4. CLAMOXYL [Concomitant]
     Indication: TONSILLITIS
     Route: 065
     Dates: start: 20120430, end: 20120505
  5. SOLUPRED [Concomitant]
     Indication: TONSILLITIS
     Route: 065
     Dates: start: 20120430, end: 20120505

REACTIONS (3)
  - Hepatocellular injury [Recovered/Resolved]
  - Pruritus [Recovered/Resolved]
  - Jaundice [Recovered/Resolved]
